FAERS Safety Report 24144040 (Version 1)
Quarter: 2024Q3

REPORT INFORMATION
  Report Type: Spontaneous
  Country: JP (occurrence: JP)
  Receive Date: 20240727
  Receipt Date: 20240727
  Transmission Date: 20241016
  Serious: Yes (Hospitalization, Other)
  Sender: CELLTRION
  Company Number: JP-CELLTRION INC.-2024JP017515

PATIENT

DRUGS (8)
  1. BEVACIZUMAB [Suspect]
     Active Substance: BEVACIZUMAB
     Indication: Non-small cell lung cancer recurrent
     Dosage: 2 CYCLES OF TREATMENT
  2. ATEZOLIZUMAB [Suspect]
     Active Substance: ATEZOLIZUMAB
     Indication: Non-small cell lung cancer recurrent
     Dosage: 2 CYCLES OF TREATMENT
  3. CARBOPLATIN [Suspect]
     Active Substance: CARBOPLATIN
     Indication: Non-small cell lung cancer recurrent
     Dosage: 2 CYCLES OF TREATMENT
  4. PACLITAXEL [Suspect]
     Active Substance: PACLITAXEL
     Indication: Non-small cell lung cancer recurrent
     Dosage: 2 CYCLES OF TREATMENT
  5. CISPLATIN [Suspect]
     Active Substance: CISPLATIN
     Indication: Non-small cell lung cancer recurrent
     Dosage: UNK UNK, CYCLIC
  6. CISPLATIN [Suspect]
     Active Substance: CISPLATIN
     Indication: Adjuvant therapy
  7. PEMETREXED [Suspect]
     Active Substance: PEMETREXED
     Indication: Non-small cell lung cancer recurrent
     Dosage: UNK UNK, CYCLIC
  8. PEMETREXED [Suspect]
     Active Substance: PEMETREXED
     Indication: Adjuvant therapy

REACTIONS (2)
  - Autoimmune aplastic anaemia [Not Recovered/Not Resolved]
  - Product use issue [Unknown]
